FAERS Safety Report 6963637-1 (Version None)
Quarter: 2010Q3

REPORT INFORMATION
  Report Type: 
  Country: None (occurrence: None)
  Receive Date: 20100902
  Receipt Date: 20100823
  Transmission Date: 20110219
  Serious: Yes (Hospitalization)
  Sender: FDA-Public Use
  Company Number: US-JNJFOC-20100807639

PATIENT
  Age: 24 Year
  Sex: Female
  Weight: 27.22 kg

DRUGS (1)
  1. EXTRA STRENGTH TYLENOL PM [Suspect]
     Indication: INTENTIONAL OVERDOSE
     Route: 048

REACTIONS (3)
  - ABDOMINAL PAIN [None]
  - INTENTIONAL OVERDOSE [None]
  - VOMITING [None]
